FAERS Safety Report 21087154 (Version 1)
Quarter: 2022Q3

REPORT INFORMATION
  Report Type: Spontaneous
  Country: US (occurrence: None)
  Receive Date: 20220714
  Receipt Date: 20220714
  Transmission Date: 20221027
  Serious: Yes (Hospitalization, Other)
  Sender: FDA-Public Use
  Company Number: None

PATIENT
  Age: 29 Year
  Sex: Male
  Weight: 66 kg

DRUGS (2)
  1. SERTRALINE HYDROCHLORIDE [Suspect]
     Active Substance: SERTRALINE HYDROCHLORIDE
     Indication: Depression
     Dosage: 100 MG EVERY DAY PO?
     Route: 048
     Dates: start: 20211103, end: 20220412
  2. BUSPIRONE HYDROCHLORIDE [Suspect]
     Active Substance: BUSPIRONE HYDROCHLORIDE
     Indication: Postpartum stress disorder
     Dosage: 10 MG TID PO?
     Route: 048
     Dates: start: 20211206, end: 20220414

REACTIONS (6)
  - Anxiety [None]
  - Agitation [None]
  - Disturbance in attention [None]
  - Tremor [None]
  - Decreased appetite [None]
  - Tachycardia [None]

NARRATIVE: CASE EVENT DATE: 20220412
